FAERS Safety Report 7183137-6 (Version None)
Quarter: 2010Q4

REPORT INFORMATION
  Report Type: 
  Country: None (occurrence: None)
  Receive Date: 20101210
  Receipt Date: 20101125
  Transmission Date: 20110411
  Serious: Yes (Death, Hospitalization)
  Sender: FDA-Public Use
  Company Number: 1000017111

PATIENT
  Age: 58 Year
  Sex: Female

DRUGS (8)
  1. CITALOPRAM HYDROBROMIDE [Suspect]
     Indication: DEPRESSION
     Dosage: 20 MG (20 MG, 1 IN 1 D)
  2. SAROTEX (AMITRIPTYLINE HYDROCHLORIDE) (TABLET) [Suspect]
     Indication: PAIN
     Dosage: 50 MG (25 MG, 2 IN 1 D);
  3. SIMVASTATIN [Concomitant]
  4. METFORMIN [Concomitant]
  5. CENTYL (BENDROFLUMETHIAZIDE) [Concomitant]
  6. INSULATARD (ISOPHANE) [Concomitant]
  7. NOVOLOG [Concomitant]
  8. ALBYL-E (ACETYLSALICYLIC ACID) [Concomitant]

REACTIONS (12)
  - BLOOD CREATININE INCREASED [None]
  - COMA [None]
  - DISSEMINATED INTRAVASCULAR COAGULATION [None]
  - DRUG INTERACTION [None]
  - HEAD INJURY [None]
  - MULTI-ORGAN FAILURE [None]
  - NERVOUS SYSTEM DISORDER [None]
  - NO THERAPEUTIC RESPONSE [None]
  - NUCLEAR MAGNETIC RESONANCE IMAGING BRAIN ABNORMAL [None]
  - RHABDOMYOLYSIS [None]
  - SEROTONIN SYNDROME [None]
  - WOUND HAEMORRHAGE [None]
